FAERS Safety Report 18904745 (Version 2)
Quarter: 2021Q1

REPORT INFORMATION
  Report Type: Spontaneous
  Country: DE (occurrence: DE)
  Receive Date: 20210217
  Receipt Date: 20210222
  Transmission Date: 20210420
  Serious: Yes (Death, Life-Threatening, Other)
  Sender: FDA-Public Use
  Company Number: DE-AMGEN-DEUSP2021023179

PATIENT

DRUGS (9)
  1. THIOGUANINE [Concomitant]
     Active Substance: THIOGUANINE
  2. CYTARABINE. [Concomitant]
     Active Substance: CYTARABINE
     Dosage: 100 MG/M2/DAY CONTINUOUS INFUSION ON D1,D2,FOLLOWED BY 30?MIN INFUSION EVERY 12 HRS ON D3 TO D8
  3. IDARUBICIN [IDARUBICIN HYDROCHLORIDE] [Concomitant]
  4. MITOXANTRONE [Concomitant]
     Active Substance: MITOXANTRONE HYDROCHLORIDE
  5. CYCLOPHOSPHAMIDE. [Concomitant]
     Active Substance: CYCLOPHOSPHAMIDE
  6. FILGRASTIM [Suspect]
     Active Substance: FILGRASTIM
     Indication: PROPHYLAXIS
     Dosage: UNK
     Route: 065
  7. PREDNISOLONE. [Concomitant]
     Active Substance: PREDNISOLONE
  8. ETOPOSIDE. [Concomitant]
     Active Substance: ETOPOSIDE
  9. VINCRISTINE [Concomitant]
     Active Substance: VINCRISTINE

REACTIONS (22)
  - Neoplasm malignant [Unknown]
  - Bacterial infection [Unknown]
  - Vomiting [Unknown]
  - Sepsis [Unknown]
  - Stomatitis [Unknown]
  - Pseudomonas infection [Unknown]
  - Enterobacter infection [Unknown]
  - Diarrhoea [Unknown]
  - Nausea [Unknown]
  - Klebsiella infection [Unknown]
  - Acute myeloid leukaemia [Unknown]
  - Liver disorder [Unknown]
  - Aspergillus infection [Unknown]
  - Cardiovascular disorder [Unknown]
  - Pyrexia [Unknown]
  - Infection [Fatal]
  - Escherichia infection [Unknown]
  - Febrile neutropenia [Unknown]
  - Candida infection [Unknown]
  - Death [Fatal]
  - Staphylococcal infection [Unknown]
  - Pharyngeal inflammation [Unknown]
